FAERS Safety Report 5480032-5 (Version None)
Quarter: 2007Q4

REPORT INFORMATION
  Report Type: 
  Country: None (occurrence: None)
  Receive Date: 20071008
  Receipt Date: 20070926
  Transmission Date: 20080405
  Serious: Yes (Other)
  Sender: FDA-Public Use
  Company Number: US-PFIZER INC-2007073685

PATIENT
  Sex: Female
  Weight: 51.7 kg

DRUGS (3)
  1. CHANTIX [Suspect]
     Indication: TOBACCO ABUSE
     Dates: start: 20070807, end: 20070827
  2. CLARITIN-D [Concomitant]
  3. VITAMIN CAP [Concomitant]

REACTIONS (7)
  - ARTHROPOD STING [None]
  - BLOOD PRESSURE INCREASED [None]
  - ECCHYMOSIS [None]
  - HAEMATOMA [None]
  - HEADACHE [None]
  - PLATELET FUNCTION TEST ABNORMAL [None]
  - PRURITUS [None]
